FAERS Safety Report 6054459-7 (Version None)
Quarter: 2009Q1

REPORT INFORMATION
  Report Type: 
  Country: None (occurrence: None)
  Receive Date: 20090123
  Receipt Date: 20090123
  Transmission Date: 20090719
  Serious: Yes (Life-Threatening)
  Sender: FDA-Public Use
  Company Number: None

PATIENT
  Age: 58 Year
  Sex: Male
  Weight: 85 kg

DRUGS (1)
  1. PANAMAR ADCOCK INGRAM [Suspect]
     Indication: NECK PAIN
     Dosage: ONCE
     Dates: start: 20080104, end: 20080104

REACTIONS (1)
  - RESPIRATORY ARREST [None]
